FAERS Safety Report 7001060-4 (Version None)
Quarter: 2010Q3

REPORT INFORMATION
  Report Type: 
  Country: None (occurrence: None)
  Receive Date: 20100920
  Receipt Date: 20100908
  Transmission Date: 20110219
  Serious: Yes (Other)
  Sender: FDA-Public Use
  Company Number: US-SANOFI-AVENTIS-2010SA053522

PATIENT
  Sex: Female

DRUGS (1)
  1. PLAVIX [Suspect]
     Route: 048
     Dates: start: 20080101

REACTIONS (12)
  - CARDIAC DISORDER [None]
  - FATIGUE [None]
  - FOREIGN BODY [None]
  - GASTRIC ULCER [None]
  - HAEMORRHAGE [None]
  - INJECTION SITE HAEMATOMA [None]
  - OEDEMA PERIPHERAL [None]
  - OESOPHAGEAL DISCOMFORT [None]
  - OESOPHAGEAL ULCER [None]
  - PRODUCT TASTE ABNORMAL [None]
  - THROAT IRRITATION [None]
  - WEIGHT INCREASED [None]
